FAERS Safety Report 8033028-3 (Version None)
Quarter: 2012Q1

REPORT INFORMATION
  Report Type: 
  Country: None (occurrence: None)
  Receive Date: 20120110
  Receipt Date: 20120104
  Transmission Date: 20120608
  Serious: Yes (Other)
  Sender: FDA-Public Use
  Company Number: US-BAYER-2012-002191

PATIENT
  Age: 24 Year
  Sex: Female

DRUGS (3)
  1. YASMIN [Suspect]
     Dosage: UNK
     Route: 048
     Dates: start: 20080101, end: 20080301
  2. YAZ [Suspect]
     Dosage: UNK
     Route: 048
     Dates: start: 20070701, end: 20071201
  3. YASMIN [Suspect]
     Dosage: UNK
     Route: 048
     Dates: start: 20050901, end: 20070901

REACTIONS (6)
  - INJURY [None]
  - CHOLECYSTECTOMY [None]
  - EMOTIONAL DISTRESS [None]
  - DEPRESSION [None]
  - FEAR OF DEATH [None]
  - NERVOUSNESS [None]
